FAERS Safety Report 25751830 (Version 1)
Quarter: 2025Q3

REPORT INFORMATION
  Report Type: Spontaneous
  Country: CN (occurrence: CN)
  Receive Date: 20250902
  Receipt Date: 20250902
  Transmission Date: 20251021
  Serious: Yes (Death, Other)
  Sender: AMGEN
  Company Number: CN-AMGEN-CHNSP2025173336

PATIENT

DRUGS (1)
  1. BLINATUMOMAB [Suspect]
     Active Substance: BLINATUMOMAB
     Indication: B-cell type acute leukaemia
     Dosage: UNK, QD (MICROGRAM)
     Route: 065

REACTIONS (17)
  - Multiple organ dysfunction syndrome [Fatal]
  - Haemorrhage [Fatal]
  - Infection [Fatal]
  - Cytokine release syndrome [Fatal]
  - Death [Fatal]
  - Transplantation complication [Fatal]
  - Acute lymphocytic leukaemia recurrent [Fatal]
  - Haematotoxicity [Unknown]
  - Hepatotoxicity [Unknown]
  - Adverse event [Unknown]
  - Pancreatitis acute [Unknown]
  - Neurotoxicity [Unknown]
  - Neutropenia [Unknown]
  - Seizure [Unknown]
  - Therapy partial responder [Unknown]
  - Therapy non-responder [Unknown]
  - Pyrexia [Unknown]
